FAERS Safety Report 16987324 (Version 11)
Quarter: 2021Q1

REPORT INFORMATION
  Report Type: Spontaneous
  Country: NL (occurrence: NL)
  Receive Date: 20191102
  Receipt Date: 20210127
  Transmission Date: 20210419
  Serious: Yes (Hospitalization)
  Sender: FDA-Public Use
  Company Number: NL-TEVA-2019-NL-1130759

PATIENT
  Age: 89 Year
  Sex: Female
  Weight: 62.8 kg

DRUGS (8)
  1. PARACETAMOL TABLET 1000MG / BRAND NAME NOT SPECIFIED [Concomitant]
     Dosage: THERAPY END DATE : ASKED BUT UNKNOWN:IF NECESSARY 4 X PER DAY 1 PIECE
     Dates: start: 20191008
  2. TEMAZEPAM CAPSULE 10MG / BRAND NAME NOT SPECIFIED [Concomitant]
     Active Substance: TEMAZEPAM
     Dosage: IF NECESSARY THERAPY END DATE : ASKED BUT UNKNOWN
     Dates: start: 20191008
  3. COLECALCIFEROL TABLET 800IE / BRAND NAME NOT SPECIFIED [Concomitant]
     Dosage: 800 IU (INTERNATIONAL UNIT) DAILY; 1 X PER DAY 1 PIECE (STOPPED) FROM RECORDING 8?10?2019, 800 IU
     Dates: start: 20190902, end: 20191008
  4. COLECALCIFEROL CAPSULE 5600IE / BRAND NAME NOT SPECIFIED [Concomitant]
     Active Substance: CHOLECALCIFEROL
     Dosage: 1 X PER WEEK (THURSDAY) 1 PIECE, 5600 IU,THERAPY END DATE : ASKED BUT UNKNOWN
     Dates: start: 20191008
  5. MIRTAZAPINE TABLET 15MG / BRAND NAME NOT SPECIFIED [Suspect]
     Active Substance: MIRTAZAPINE
     Indication: DEPRESSED MOOD
     Dosage: 15 MILLIGRAM DAILY;
     Dates: start: 20190508, end: 20191008
  6. MACROGOL [Concomitant]
     Active Substance: POLYETHYLENE GLYCOLS
     Dosage: IF NECESSARY 1 X PER DAY:THERAPY END DATE : ASKED BUT UNKNOWN
     Dates: start: 20190902
  7. ENALAPRIL TABLET 20MG / BRAND NAME NOT SPECIFIED [Suspect]
     Active Substance: ENALAPRIL
     Indication: HYPERTENSION
     Dosage: 20 MILLIGRAM DAILY;
     Dates: start: 20181122, end: 20191010
  8. DALTEPARINE INJVLST 12.500IE/ML / FRAGMIN 2500 INJVLST 12.500IE/ML WWS [Concomitant]
     Dosage: 1 DOSAGE FORMS DAILY; THERAPY END DATE : ASKED BUT UNKNOWN
     Dates: start: 20191008

REACTIONS (1)
  - Hyponatraemia [Recovered/Resolved]

NARRATIVE: CASE EVENT DATE: 20190821
